FAERS Safety Report 9122457 (Version 4)
Quarter: 2013Q4

REPORT INFORMATION
  Report Type: Spontaneous
  Country: GB (occurrence: GB)
  Receive Date: 20130227
  Receipt Date: 20131009
  Transmission Date: 20140711
  Serious: Yes (Life-Threatening, Other)
  Sender: FDA-Public Use
  Company Number: GB-PFIZER INC-2013067535

PATIENT
  Age: 37 Year
  Sex: Female
  Weight: 53 kg

DRUGS (3)
  1. CHAMPIX [Suspect]
     Indication: SMOKING CESSATION THERAPY
     Dosage: 0.5 MG, 2X/DAY
     Route: 048
     Dates: start: 20130125, end: 2013
  2. CHAMPIX [Suspect]
     Dosage: UNK, 2 MG DAILY
     Route: 048
     Dates: start: 2013, end: 2013
  3. CHAMPIX [Suspect]
     Dosage: UNK, 1 MG DAILY
     Route: 048
     Dates: start: 2013, end: 20130205

REACTIONS (8)
  - Depression [Recovered/Resolved]
  - Suicidal ideation [Recovered/Resolved]
  - Mental status changes [Unknown]
  - Crying [Unknown]
  - Feeling of despair [Unknown]
  - Abnormal dreams [Unknown]
  - Depressed mood [Unknown]
  - Nightmare [Recovered/Resolved]
